FAERS Safety Report 26216914 (Version 1)
Quarter: 2025Q4

REPORT INFORMATION
  Report Type: Spontaneous
  Country: US (occurrence: None)
  Receive Date: 20251231
  Receipt Date: 20251231
  Transmission Date: 20260118
  Serious: Yes (Other)
  Sender: CHIESI
  Company Number: US-CHIESI-2025CHF09409

PATIENT
  Age: 18 Year
  Sex: Male

DRUGS (3)
  1. METRELEPTIN [Suspect]
     Active Substance: METRELEPTIN
     Indication: Rabson-Mendenhall syndrome
     Dosage: UNK
  2. METRELEPTIN [Suspect]
     Active Substance: METRELEPTIN
     Indication: Off label use
  3. METFORMIN [Concomitant]
     Active Substance: METFORMIN HYDROCHLORIDE
     Indication: Diabetes mellitus
     Dosage: UNK

REACTIONS (2)
  - Papillary thyroid cancer [Recovered/Resolved]
  - Off label use [Unknown]
